FAERS Safety Report 11911482 (Version 2)
Quarter: 2016Q1

REPORT INFORMATION
  Report Type: Report from Study
  Country: IT (occurrence: IT)
  Receive Date: 20160112
  Receipt Date: 20160119
  Transmission Date: 20160526
  Serious: Yes (Other)
  Sender: FDA-Public Use
  Company Number: IT-AMGEN-ITACT2016002411

PATIENT
  Age: 12 Year
  Sex: Male
  Weight: 48 kg

DRUGS (28)
  1. CEFTAZIDIME. [Concomitant]
     Active Substance: CEFTAZIDIME
     Dosage: 1300 MG, UNK
     Route: 042
     Dates: start: 20151203, end: 20151209
  2. NACL [Concomitant]
     Active Substance: SODIUM CHLORIDE
     Dosage: 20-100 ML, UNK
     Route: 042
     Dates: start: 20151125, end: 20151209
  3. TANTUM VERDE [Concomitant]
     Active Substance: BENZYDAMINE HYDROCHLORIDE
     Dosage: 1 UNK, UNK
     Route: 042
     Dates: start: 20151205, end: 20151209
  4. VALACICLOVIR [Concomitant]
     Active Substance: VALACYCLOVIR HYDROCHLORIDE
     Dosage: 1 G, UNK
     Route: 042
     Dates: start: 20151208
  5. AIROL [Concomitant]
     Dosage: 1 UNK, UNK
     Route: 061
     Dates: start: 20151210, end: 20160104
  6. AUGMENTIN [Concomitant]
     Active Substance: AMOXICILLIN\CLAVULANATE POTASSIUM
     Dosage: 1 UNK, UNK
     Route: 048
     Dates: start: 20151221, end: 20151228
  7. GLUTATHIONE [Concomitant]
     Active Substance: GLUTATHIONE
     Dosage: 2 UNK, UNK
     Route: 042
     Dates: start: 20151229, end: 20151231
  8. ACETAMINOPHEN. [Concomitant]
     Active Substance: ACETAMINOPHEN
     Dosage: 600 MG, UNK
     Route: 042
     Dates: start: 20151126, end: 20151201
  9. BLINATUMOMAB [Suspect]
     Active Substance: BLINATUMOMAB
     Indication: ACUTE LYMPHOCYTIC LEUKAEMIA
     Dosage: 15 MUG/M2, UNK
     Route: 042
     Dates: start: 20151126, end: 20160108
  10. PANTOPRAZOLE [Concomitant]
     Active Substance: PANTOPRAZOLE SODIUM
     Dosage: 20 MG, UNK
     Route: 048
     Dates: start: 20151123, end: 20151207
  11. POSACONAZOLE [Concomitant]
     Active Substance: POSACONAZOLE
     Dosage: 5-10 ML, UNK
     Route: 048
     Dates: start: 20151123, end: 20151228
  12. ACICLOVIR [Concomitant]
     Active Substance: ACYCLOVIR
     Dosage: 650 MG, UNK
     Route: 042
     Dates: start: 20151205, end: 20151207
  13. MAGNESIUM SULFATE. [Concomitant]
     Active Substance: MAGNESIUM SULFATE
     Dosage: 10 ML, UNK
     Route: 042
     Dates: start: 20151203, end: 20151209
  14. COTRIMOXAZOLE [Concomitant]
     Active Substance: SULFAMETHOXAZOLE\TRIMETHOPRIM
     Dosage: 1 UNK, UNK
     Route: 048
     Dates: start: 20151123
  15. ZYRTEC [Concomitant]
     Active Substance: CETIRIZINE HYDROCHLORIDE
     Dosage: 1 UNK, UNK
     Route: 048
     Dates: start: 20151209, end: 20151224
  16. PARENTERAL [Concomitant]
     Dosage: 1000-1225 ML, UNK
     Route: 042
     Dates: start: 20151207, end: 20151231
  17. METHYLPREDNISOLONE. [Concomitant]
     Active Substance: METHYLPREDNISOLONE
     Dosage: 12 MG, UNK
     Route: 037
     Dates: start: 20151224, end: 20151224
  18. CALCIUM GLUCONATE. [Concomitant]
     Active Substance: CALCIUM GLUCONATE
     Dosage: 20-50 ML, UNK
     Route: 042
     Dates: start: 20151130, end: 20151209
  19. IMMUNOGLOBULIN                     /00025201/ [Concomitant]
     Active Substance: HUMAN IMMUNOGLOBULIN G
     Dosage: 10-20 GM, UNK
     Route: 042
     Dates: start: 20151218, end: 20160104
  20. KCL [Concomitant]
     Active Substance: POTASSIUM CHLORIDE
     Dosage: 10-20 ML, UNK
     Route: 042
     Dates: start: 20151128, end: 20151201
  21. DESAMETASONE [Concomitant]
     Active Substance: DEXAMETHASONE
     Dosage: 2-13 MG, UNK
     Dates: start: 20151123, end: 20151210
  22. RANITIDINE [Concomitant]
     Active Substance: RANITIDINE\RANITIDINE HYDROCHLORIDE
     Dosage: 20-150 MG, UNK
     Route: 042
     Dates: start: 20151127
  23. ALLOPURINOL. [Concomitant]
     Active Substance: ALLOPURINOL
     Dosage: 150-300 MG, UNK
     Route: 048
     Dates: start: 20151123, end: 20151207
  24. CYTARABINE. [Concomitant]
     Active Substance: CYTARABINE
     Dosage: 30 MG, UNK
     Route: 042
     Dates: start: 20151224, end: 20151224
  25. CHLORPHENAMINE [Concomitant]
     Active Substance: CHLORPHENIRAMINE MALEATE
     Dosage: 10 MG, UNK
     Route: 042
     Dates: start: 20151126
  26. METHOTREXATE [Concomitant]
     Active Substance: METHOTREXATE
     Dosage: 12 MG, UNK
     Route: 037
     Dates: start: 20151224, end: 20151224
  27. MYCOSTATIN [Concomitant]
     Active Substance: NYSTATIN
     Dosage: 10 ML, UNK
     Route: 042
     Dates: start: 20151205, end: 20151209
  28. TEICOPLANIN [Concomitant]
     Active Substance: TEICOPLANIN
     Dosage: 400 MG, UNK
     Route: 042
     Dates: start: 20151203, end: 20151209

REACTIONS (7)
  - Aphasia [Recovered/Resolved]
  - VIth nerve paralysis [Recovered/Resolved]
  - Amnesia [Recovered/Resolved]
  - Cytokine release syndrome [Recovered/Resolved]
  - Urinary retention [Recovered/Resolved]
  - Depressed level of consciousness [Recovered/Resolved]
  - Meningism [Recovered/Resolved]

NARRATIVE: CASE EVENT DATE: 20160108
